FAERS Safety Report 4384173-5 (Version None)
Quarter: 2004Q2

REPORT INFORMATION
  Report Type: 
  Country: None (occurrence: None)
  Receive Date: 20040621
  Receipt Date: 20040607
  Transmission Date: 20050107
  Serious: Yes (Other)
  Sender: FDA-Public Use
  Company Number: HQWYE347008JUN04

PATIENT
  Age: 46 Year
  Sex: Female
  Weight: 60.38 kg

DRUGS (11)
  1. EFFEXOR XR [Suspect]
     Indication: GENERALISED ANXIETY DISORDER
     Dosage: SEE IMAGE
     Route: 048
     Dates: start: 20010101, end: 20010101
  2. EFFEXOR XR [Suspect]
     Indication: GENERALISED ANXIETY DISORDER
     Dosage: SEE IMAGE
     Route: 048
     Dates: start: 20010101, end: 20010101
  3. EFFEXOR XR [Suspect]
     Indication: GENERALISED ANXIETY DISORDER
     Dosage: SEE IMAGE
     Route: 048
     Dates: start: 20010101, end: 20010101
  4. EFFEXOR XR [Suspect]
     Indication: GENERALISED ANXIETY DISORDER
     Dosage: SEE IMAGE
     Route: 048
     Dates: start: 20010701, end: 20010101
  5. EFFEXOR XR [Suspect]
     Indication: GENERALISED ANXIETY DISORDER
     Dosage: SEE IMAGE
     Route: 048
     Dates: start: 20010101, end: 20040414
  6. EFFEXOR XR [Suspect]
     Indication: GENERALISED ANXIETY DISORDER
     Dosage: SEE IMAGE
     Route: 048
     Dates: start: 20040415, end: 20040601
  7. LO/OVRAL [Suspect]
     Dosage: ORAL
     Route: 048
  8. SYNTHROID [Concomitant]
  9. SYNTHROID [Concomitant]
  10. YASMIN [Concomitant]
  11. CARDIZEM [Concomitant]

REACTIONS (30)
  - ANORGASMIA [None]
  - ANXIETY [None]
  - CENTRAL NERVOUS SYSTEM STIMULATION [None]
  - CONDITION AGGRAVATED [None]
  - CYSTITIS [None]
  - DECREASED APPETITE [None]
  - DIZZINESS [None]
  - DRY MOUTH [None]
  - EAR DISORDER [None]
  - FEELING HOT [None]
  - HEADACHE [None]
  - HYPERHIDROSIS [None]
  - INFLUENZA LIKE ILLNESS [None]
  - LOSS OF LIBIDO [None]
  - LYMPHADENOPATHY [None]
  - METRORRHAGIA [None]
  - MYALGIA [None]
  - NECK PAIN [None]
  - OEDEMA PERIPHERAL [None]
  - PHOTOPHOBIA [None]
  - PYREXIA [None]
  - SOMNOLENCE [None]
  - STAPHYLOCOCCAL INFECTION [None]
  - THYROXINE FREE DECREASED [None]
  - TRI-IODOTHYRONINE DECREASED [None]
  - UNEXPECTED THERAPEUTIC DRUG EFFECT [None]
  - URTICARIA [None]
  - VOMITING [None]
  - WEIGHT DECREASED [None]
  - WEIGHT INCREASED [None]
